FAERS Safety Report 5142909-X (Version None)
Quarter: 2006Q4

REPORT INFORMATION
  Report Type: 
  Country: None (occurrence: None)
  Receive Date: 20061030
  Receipt Date: 20061011
  Transmission Date: 20070319
  Serious: Yes (Hospitalization)
  Sender: FDA-Public Use
  Company Number: DE200610003194

PATIENT
  Sex: Female
  Weight: 78 kg

DRUGS (5)
  1. GEMCITABINE [Suspect]
     Indication: BREAST CANCER
     Dosage: 1200 MG, INTRAVENOUS
     Route: 042
     Dates: start: 20060821
  2. *DOCETAXEL (*DOCETAXEL) UNKNOWN [Suspect]
     Indication: BREAST CANCER
     Dosage: 120 MG, INTRAVENOUS
     Route: 042
     Dates: start: 20060821
  3. PALONOSETRON (PALONOSETRON) [Concomitant]
  4. TAVEGIL (CLEMASTINE) [Concomitant]
  5. CIMETIDIN ^ALUID PHARMA^ (CIMETIDINE) [Concomitant]

REACTIONS (2)
  - HAEMOGLOBINAEMIA [None]
  - LEUKOPENIA [None]
